FAERS Safety Report 8814056 (Version 1)
Quarter: 2012Q4

REPORT INFORMATION
  Report Type: 
  Country: US (occurrence: US)
  Receive Date: 20120928
  Receipt Date: 20120928
  Transmission Date: 20130627
  Serious: No
  Sender: FDA-Public Use
  Company Number: US-PFIZER INC-2012239778

PATIENT
  Age: 55 Year
  Sex: Female
  Weight: 111 kg

DRUGS (1)
  1. NEURONTIN [Suspect]
     Indication: NERVE INJURY
     Dosage: 1200 mg, 3x/day
     Route: 048
     Dates: start: 2003

REACTIONS (2)
  - Aphonia [Unknown]
  - Gastrooesophageal reflux disease [Unknown]
